FAERS Safety Report 8760206 (Version 2)
Quarter: 2012Q4

REPORT INFORMATION
  Report Type: 
  Country: US (occurrence: US)
  Receive Date: 20120829
  Receipt Date: 20120829
  Transmission Date: 20130627
  Serious: Yes (Hospitalization, Other)
  Sender: FDA-Public Use
  Company Number: US-009507513-2011SP014622

PATIENT

DRUGS (1)
  1. NUVARING [Suspect]
     Indication: CONTRACEPTION
     Dates: start: 200801, end: 200804

REACTIONS (17)
  - Pulmonary embolism [Unknown]
  - Deep vein thrombosis [Unknown]
  - Post-traumatic stress disorder [Unknown]
  - Conduction disorder [Unknown]
  - Skin lesion [Unknown]
  - Upper respiratory tract infection [Unknown]
  - Nausea [Recovered/Resolved]
  - Mental disorder [None]
  - Right ventricular failure [None]
  - Pulmonary hypertension [None]
  - Road traffic accident [None]
  - Mitral valve incompetence [None]
  - Neck pain [None]
  - Musculoskeletal pain [None]
  - Arthralgia [None]
  - Muscle strain [None]
  - Cellulitis [None]
